FAERS Safety Report 8784493 (Version 1)
Quarter: 2012Q4

REPORT INFORMATION
  Report Type: 
  Country: NL (occurrence: NL)
  Receive Date: 20120913
  Receipt Date: 20120913
  Transmission Date: 20130627
  Serious: Yes (Other)
  Sender: FDA-Public Use
  Company Number: NL-PFIZER INC-2012222122

PATIENT
  Age: 59 Year
  Sex: Male
  Weight: 92 kg

DRUGS (6)
  1. ATORVASTATIN CALCIUM [Suspect]
     Indication: CORONARY ANGIOPLASTY
     Dosage: 40 mg, 1x/day
     Dates: start: 20120717, end: 20120901
  2. GLIMEPIRIDE [Concomitant]
     Dosage: 1 mg, UNK
  3. METOPROLOL [Concomitant]
     Dosage: 50 mg, UNK
  4. METFORMIN [Concomitant]
     Dosage: 500 mg, UNK
  5. ACETYLSALICYLIC ACID [Concomitant]
     Dosage: 80 mg, UNK
  6. CANDESARTAN [Concomitant]
     Dosage: 4 mg, UNK

REACTIONS (4)
  - Activities of daily living impaired [Recovering/Resolving]
  - Dyspnoea [Recovering/Resolving]
  - Myalgia [Recovering/Resolving]
  - Hyperhidrosis [Recovering/Resolving]
